FAERS Safety Report 6093022-9 (Version None)
Quarter: 2009Q1

REPORT INFORMATION
  Report Type: 
  Country: None (occurrence: None)
  Receive Date: 20090224
  Receipt Date: 20090212
  Transmission Date: 20090719
  Serious: Yes (Other)
  Sender: FDA-Public Use
  Company Number: 2009SP000445

PATIENT
  Age: 77 Year
  Sex: Male
  Weight: 59.4 kg

DRUGS (11)
  1. XOPENEX [Suspect]
     Indication: ADVERSE DRUG REACTION
     Dosage: ; INHALATION, 0.63 MG/3ML; BID; INHALATION
     Route: 055
     Dates: start: 20081001, end: 20081001
  2. XOPENEX [Suspect]
     Indication: CHRONIC OBSTRUCTIVE PULMONARY DISEASE
     Dosage: ; INHALATION, 0.63 MG/3ML; BID; INHALATION
     Route: 055
     Dates: start: 20081001, end: 20081001
  3. XOPENEX [Suspect]
     Indication: ADVERSE DRUG REACTION
     Dosage: ; INHALATION, 0.63 MG/3ML; BID; INHALATION
     Route: 055
     Dates: start: 20090207, end: 20090208
  4. XOPENEX [Suspect]
     Indication: CHRONIC OBSTRUCTIVE PULMONARY DISEASE
     Dosage: ; INHALATION, 0.63 MG/3ML; BID; INHALATION
     Route: 055
     Dates: start: 20090207, end: 20090208
  5. XOPENEX [Suspect]
     Indication: ADVERSE DRUG REACTION
     Dosage: ; INHALATION, 0.63 MG/3ML; BID; INHALATION
     Route: 055
     Dates: start: 20090210
  6. XOPENEX [Suspect]
     Indication: CHRONIC OBSTRUCTIVE PULMONARY DISEASE
     Dosage: ; INHALATION, 0.63 MG/3ML; BID; INHALATION
     Route: 055
     Dates: start: 20090210
  7. ALBUTEROL [Suspect]
     Indication: CHRONIC OBSTRUCTIVE PULMONARY DISEASE
     Dosage: ; INHALATION
     Route: 055
     Dates: start: 20081001, end: 20090207
  8. ALBUTEROL [Suspect]
     Indication: CHRONIC OBSTRUCTIVE PULMONARY DISEASE
     Dosage: ; INHALATION
     Route: 055
     Dates: start: 20090209, end: 20090209
  9. AMLODIPINE [Concomitant]
  10. DUONEB [Concomitant]
  11. ATROVENT [Concomitant]

REACTIONS (2)
  - DRUG INEFFECTIVE [None]
  - VENTRICULAR TACHYCARDIA [None]
